FAERS Safety Report 4727679-9 (Version None)
Quarter: 2005Q3

REPORT INFORMATION
  Report Type: 
  Country: None (occurrence: None)
  Receive Date: 20050725
  Receipt Date: 20050503
  Transmission Date: 20060218
  Serious: No
  Sender: FDA-Public Use
  Company Number: USA050597104

PATIENT
  Age: 12 Year
  Sex: Male
  Weight: 43 kg

DRUGS (1)
  1. STRATTERA [Suspect]
     Dosage: 80 MG DAY

REACTIONS (2)
  - ABDOMINAL PAIN UPPER [None]
  - PRESCRIBED OVERDOSE [None]
